FAERS Safety Report 8268928-2 (Version None)
Quarter: 2012Q2

REPORT INFORMATION
  Report Type: 
  Country: None (occurrence: None)
  Receive Date: 20120409
  Receipt Date: 20120402
  Transmission Date: 20120825
  Serious: Yes (Other)
  Sender: FDA-Public Use
  Company Number: US-US-EMD SERONO, INC.-7121474

PATIENT
  Sex: Female
  Weight: 104 kg

DRUGS (2)
  1. REBIF [Suspect]
     Indication: MULTIPLE SCLEROSIS
     Route: 058
     Dates: start: 20110326
  2. OXYCODONE HCL [Concomitant]
     Indication: PREMEDICATION
     Dosage: EVERY 4-5 HOURS

REACTIONS (3)
  - THROMBOSIS [None]
  - PAIN [None]
  - CAROTID ARTERY STENOSIS [None]
